FAERS Safety Report 21187800 (Version 1)
Quarter: 2022Q3

REPORT INFORMATION
  Report Type: Spontaneous
  Country: US (occurrence: None)
  Receive Date: 20220809
  Receipt Date: 20220809
  Transmission Date: 20221026
  Serious: No
  Sender: FDA-Public Use
  Company Number: US-ROCHE-3086334

PATIENT
  Age: 31 Year
  Sex: Female

DRUGS (2)
  1. EVRYSDI [Suspect]
     Active Substance: RISDIPLAM
     Indication: Spinal muscular atrophy
     Dosage: ONGOING-UNKNOWN
     Route: 048
     Dates: start: 202010
  2. EVRYSDI [Suspect]
     Active Substance: RISDIPLAM
     Dosage: ONGOING-YES
     Route: 048
     Dates: start: 202102

REACTIONS (3)
  - Weight increased [Unknown]
  - Balance disorder [Unknown]
  - Walking aid user [Unknown]
